FAERS Safety Report 10424148 (Version 2)
Quarter: 2014Q3

REPORT INFORMATION
  Report Type: Spontaneous
  Country: US (occurrence: US)
  Receive Date: 20140902
  Receipt Date: 20140917
  Transmission Date: 20150326
  Serious: No
  Sender: FDA-Public Use
  Company Number: US-PFIZER INC-2014240115

PATIENT
  Age: 66 Year
  Sex: Female
  Weight: 72.56 kg

DRUGS (5)
  1. LYRICA [Suspect]
     Active Substance: PREGABALIN
     Indication: EXOSTOSIS
     Dosage: 75 MG, 2X/DAY
     Route: 048
     Dates: start: 20140715
  2. METOPROLOL [Concomitant]
     Active Substance: METOPROLOL
     Dosage: UNK
  3. DONEPEZIL [Concomitant]
     Active Substance: DONEPEZIL
     Dosage: UNK
  4. FENOFIBRATE. [Concomitant]
     Active Substance: FENOFIBRATE
     Dosage: UNK
  5. HYDROCHLOROTHIAZIDE/LOSARTAN [Concomitant]
     Dosage: UNK

REACTIONS (1)
  - Therapeutic response changed [Unknown]

NARRATIVE: CASE EVENT DATE: 2014
